FAERS Safety Report 17407003 (Version 1)
Quarter: 2020Q1

REPORT INFORMATION
  Report Type: Spontaneous
  Country: AT (occurrence: AT)
  Receive Date: 20200212
  Receipt Date: 20200212
  Transmission Date: 20200409
  Serious: Yes (Other)
  Sender: FDA-Public Use
  Company Number: AT-ACCORD-172238

PATIENT
  Age: 67 Year
  Sex: Female

DRUGS (7)
  1. DIBONDRIN [Concomitant]
     Active Substance: DIPHENHYDRAMINE HYDROCHLORIDE
  2. AVASTIN [Concomitant]
     Active Substance: BEVACIZUMAB
     Dosage: STRENGTH: 25 MG / ML
  3. FORTECORTIN [Concomitant]
     Active Substance: DEXAMETHASONE
     Dosage: STRENGTH: 40 MG SPRAY AMPOULE INJECT
  4. CARBOPLATIN ACCORD [Suspect]
     Active Substance: CARBOPLATIN
     Indication: OVARIAN CANCER
     Dosage: STRENGTH: 10 MG / ML
     Route: 042
     Dates: start: 20200123, end: 20200123
  5. EBETAXEL [Concomitant]
     Active Substance: PACLITAXEL
     Dosage: STRENGTH: 6 MG / ML
  6. KYTRIL [Concomitant]
     Active Substance: GRANISETRON HYDROCHLORIDE
     Dosage: STRENGTH: 3 MG
  7. ULSAL [Concomitant]
     Active Substance: RANITIDINE HYDROCHLORIDE
     Dosage: STRENGTH: 50 MG / 2 ML

REACTIONS (7)
  - Tachycardia [Unknown]
  - Diarrhoea [Unknown]
  - Urticaria [Unknown]
  - Breast pain [Unknown]
  - Hypertension [Unknown]
  - Dyspnoea [Unknown]
  - Vomiting [Unknown]

NARRATIVE: CASE EVENT DATE: 20200123
